FAERS Safety Report 12615235 (Version 1)
Quarter: 2016Q3

REPORT INFORMATION
  Report Type: Spontaneous
  Country: IL (occurrence: IL)
  Receive Date: 20160802
  Receipt Date: 20160802
  Transmission Date: 20161109
  Serious: Yes (Hospitalization)
  Sender: FDA-Public Use
  Company Number: IL-MYLANLABS-2016M1031428

PATIENT

DRUGS (1)
  1. ISOTRETINOIN [Suspect]
     Active Substance: ISOTRETINOIN
     Indication: ICHTHYOSIS
     Dosage: 40MG DAILY
     Route: 065

REACTIONS (2)
  - Blood creatine phosphokinase increased [Unknown]
  - Unmasking of previously unidentified disease [Unknown]
